FAERS Safety Report 8293803-7 (Version None)
Quarter: 2012Q2

REPORT INFORMATION
  Report Type: 
  Country: None (occurrence: None)
  Receive Date: 20120413
  Receipt Date: 20120402
  Transmission Date: 20120825
  Serious: Yes (Other)
  Sender: FDA-Public Use
  Company Number: US-GDP-12413426

PATIENT
  Sex: Male
  Weight: 109 kg

DRUGS (3)
  1. CLOBEX [Suspect]
     Indication: PSORIASIS
     Dosage: 1 DF QD TOPICAL
     Route: 061
     Dates: start: 20090101
  2. CLOBEX [Suspect]
     Indication: PSORIASIS
     Dosage: 1 DF QD TOPICAL
     Route: 061
     Dates: start: 20090101
  3. CLOBEX [Suspect]
     Indication: PSORIASIS
     Dosage: 1 DF QD TOPICAL
     Route: 061
     Dates: start: 20090101

REACTIONS (3)
  - CONVULSION [None]
  - EPISTAXIS [None]
  - MIGRAINE [None]
